FAERS Safety Report 5061466-X (Version None)
Quarter: 2006Q3

REPORT INFORMATION
  Report Type: 
  Country: None (occurrence: None)
  Receive Date: 20060703
  Receipt Date: 20060413
  Transmission Date: 20061208
  Serious: No
  Sender: FDA-Public Use
  Company Number: 2006PV012130

PATIENT
  Age: 35 Year
  Sex: Female

DRUGS (6)
  1. SYMLIN [Suspect]
     Dosage: SEE IMAGE
     Route: 058
     Dates: start: 20060328, end: 20060405
  2. SYMLIN [Suspect]
     Dosage: SEE IMAGE
     Route: 058
     Dates: start: 20060406, end: 20060410
  3. SYMLIN [Suspect]
     Dosage: SEE IMAGE
     Route: 058
     Dates: start: 20060411
  4. APIDRA/ INSULIN PUMP [Concomitant]
  5. SYNTHROID [Concomitant]
  6. ASPIRIN [Concomitant]

REACTIONS (2)
  - INJECTION SITE BRUISING [None]
  - INJECTION SITE PAIN [None]
